FAERS Safety Report 5570572-2 (Version None)
Quarter: 2007Q4

REPORT INFORMATION
  Report Type: 
  Country: None (occurrence: None)
  Receive Date: 20071221
  Receipt Date: 20071218
  Transmission Date: 20080405
  Serious: Yes (Other)
  Sender: FDA-Public Use
  Company Number: US-BRISTOL-MYERS SQUIBB COMPANY-14018220

PATIENT

DRUGS (4)
  1. CISPLATIN [Suspect]
     Indication: SQUAMOUS CELL CARCINOMA
     Dosage: AS 3 HOUR INTRAVENOUS INFUSION.  DAYS 1 TO 6 WAS ADMINISTERED IN THE HOSPITAL.
     Route: 042
  2. BLEOMYCIN [Suspect]
     Indication: SQUAMOUS CELL CARCINOMA
     Dosage: ON DAYS 2-6. TOTAL INFUSION OF 50MG/M. ON DAYS 2 AND 3-20MG/M2 BLEOMYCIN GIVEN INTRA-ARTERIALLY.
     Route: 042
  3. METHOTREXATE [Suspect]
     Indication: SQUAMOUS CELL CARCINOMA
     Dosage: DAY 2, 15, AND 22 DOSE WAS 200 MG/M2
     Route: 042
  4. LEUCOVORIN CALCIUM [Suspect]
     Dosage: ON DAYS 1, 15, AND 22
     Route: 048

REACTIONS (5)
  - HAEMATOTOXICITY [None]
  - INFECTION [None]
  - NEPHROPATHY TOXIC [None]
  - PULMONARY TOXICITY [None]
  - STOMATITIS [None]
